FAERS Safety Report 7136729-4 (Version None)
Quarter: 2010Q4

REPORT INFORMATION
  Report Type: 
  Country: None (occurrence: None)
  Receive Date: 20101118
  Receipt Date: 20101103
  Transmission Date: 20110411
  Serious: Yes (Hospitalization)
  Sender: FDA-Public Use
  Company Number: 2010003892

PATIENT
  Age: 60 Year
  Sex: Male
  Weight: 62.2 kg

DRUGS (19)
  1. ERLOTINIB/PLACEBO (ERLOTINIB) (TABLE) (ERLOTINIB) [Suspect]
     Indication: HEPATIC NEOPLASM MALIGNANT
     Dosage: (150 MG,QD), ORAL; (100 MG,QD), ORAL
     Route: 048
     Dates: start: 20090901, end: 20100816
  2. ERLOTINIB/PLACEBO (ERLOTINIB) (TABLE) (ERLOTINIB) [Suspect]
     Indication: HEPATIC NEOPLASM MALIGNANT
     Dosage: (150 MG,QD), ORAL; (100 MG,QD), ORAL
     Route: 048
     Dates: start: 20100908
  3. SORAFENIB [Suspect]
     Indication: HEPATIC NEOPLASM MALIGNANT
     Dosage: (800 MG,QD),ORAL
     Dates: start: 20090901, end: 20100816
  4. SORAFENIB [Suspect]
     Indication: HEPATIC NEOPLASM MALIGNANT
     Dosage: (800 MG,QD),ORAL
     Dates: start: 20100908
  5. ALLOPURINOL [Concomitant]
  6. XYZALL (LEVOCETIRIZINE) [Concomitant]
  7. AMLODIPINE BESYLATE [Concomitant]
  8. OPIUM TINCTURE (OPIUM TINCTURE) [Concomitant]
  9. ZANTAC [Concomitant]
  10. IMODIUM INSTANT (LOPERAMIDE HYDROCHLORIDE) [Concomitant]
  11. SODIUM CHLORIDE [Concomitant]
  12. PANTOMED ( PANTOPRAZOLE) [Concomitant]
  13. GAVISCON [Concomitant]
  14. LASIX (PUROSEMIDE) [Concomitant]
  15. ULTRA K (POTASSIUM GLUCONATE ) [Concomitant]
  16. FLOXAPEN (FLUCLOXACILLIN SODIUM) [Concomitant]
  17. DEMECLOCYCLINE HCL [Concomitant]
  18. ALDACTONE [Concomitant]
  19. KABIVEN [Concomitant]

REACTIONS (3)
  - DEHYDRATION [None]
  - ENTERITIS [None]
  - GASTROINTESTINAL INFLAMMATION [None]
